FAERS Safety Report 25230308 (Version 2)
Quarter: 2025Q3

REPORT INFORMATION
  Report Type: Spontaneous
  Country: US (occurrence: US)
  Receive Date: 20250423
  Receipt Date: 20250720
  Transmission Date: 20251021
  Serious: Yes (Other)
  Sender: RADIUS PHARM
  Company Number: US-RADIUS HEALTH INC.-US-RADIUS-25046744

PATIENT
  Age: 68 Year
  Sex: Female

DRUGS (1)
  1. TYMLOS [Suspect]
     Active Substance: ABALOPARATIDE
     Indication: Rheumatoid arthritis
     Dosage: 80 MICROGRAM, QD
     Route: 058
     Dates: start: 20250318

REACTIONS (4)
  - Hallucination [Not Recovered/Not Resolved]
  - Lower limb fracture [Unknown]
  - Product dose omission issue [Unknown]
  - Product use in unapproved indication [Not Recovered/Not Resolved]

NARRATIVE: CASE EVENT DATE: 20250318
